FAERS Safety Report 9751923 (Version 1)
Quarter: 2013Q4

REPORT INFORMATION
  Report Type: Report from Study
  Country: BE (occurrence: BE)
  Receive Date: 20131213
  Receipt Date: 20131213
  Transmission Date: 20140711
  Serious: Yes (Hospitalization)
  Sender: FDA-Public Use
  Company Number: BE-BRISTOL-MYERS SQUIBB COMPANY-19914431

PATIENT
  Age: 60 Year
  Sex: Female

DRUGS (2)
  1. CETUXIMAB [Suspect]
     Indication: CHOLANGIOCARCINOMA
     Dosage: 250MG/M2 IN A 60 MIN I.V.
     Route: 042
     Dates: start: 20091006, end: 20100126
  2. GEMCITABINE [Suspect]
     Indication: CHOLANGIOCARCINOMA
     Route: 042
     Dates: start: 20091006, end: 20100126

REACTIONS (1)
  - Haemolytic uraemic syndrome [Recovered/Resolved]
